FAERS Safety Report 6166980-1 (Version None)
Quarter: 2009Q2

REPORT INFORMATION
  Report Type: 
  Country: None (occurrence: None)
  Receive Date: 20090423
  Receipt Date: 20090423
  Transmission Date: 20091009
  Serious: No
  Sender: FDA-Public Use
  Company Number: None

PATIENT
  Age: 70 Year
  Sex: Female
  Weight: 49.8957 kg

DRUGS (6)
  1. METFORMIN HCL [Suspect]
     Indication: TYPE 2 DIABETES MELLITUS
     Dosage: 1000MG BID PO
     Route: 048
  2. ATENOLOL [Concomitant]
  3. LISINOPRIL [Concomitant]
  4. SIMVASTATIN [Concomitant]
  5. ASPIRIN [Concomitant]
  6. GINGOBILOBA [Concomitant]

REACTIONS (6)
  - AMNESIA [None]
  - DECREASED APPETITE [None]
  - FLAT AFFECT [None]
  - FOOD AVERSION [None]
  - SOMNOLENCE [None]
  - WEIGHT DECREASED [None]
